FAERS Safety Report 9688123 (Version 1)
Quarter: 2013Q4

REPORT INFORMATION
  Report Type: Spontaneous
  Country: US (occurrence: None)
  Receive Date: 20131113
  Receipt Date: 20131113
  Transmission Date: 20140711
  Serious: No
  Sender: FDA-Public Use
  Company Number: None

PATIENT
  Age: 50 Year
  Sex: Male
  Weight: 81.65 kg

DRUGS (1)
  1. INVEGA SUSTENA [Suspect]
     Indication: ANXIETY
     Dosage: ONE YEAR OF MONTHLY SHOTS
     Dates: start: 20120710, end: 20130601

REACTIONS (1)
  - Unevaluable event [None]
